FAERS Safety Report 17535171 (Version 1)
Quarter: 2020Q1

REPORT INFORMATION
  Report Type: Report from Study
  Country: US (occurrence: US)
  Receive Date: 20200313
  Receipt Date: 20200313
  Transmission Date: 20200409
  Serious: Yes (Other)
  Sender: FDA-Public Use
  Company Number: US-ROCHE-2563646

PATIENT

DRUGS (3)
  1. ENTOSPLETINIB [Suspect]
     Active Substance: ENTOSPLETINIB
     Indication: CHRONIC LYMPHOCYTIC LEUKAEMIA REFRACTORY
     Route: 065
  2. TIRABRUTINIB [Suspect]
     Active Substance: TIRABRUTINIB
     Indication: CHRONIC LYMPHOCYTIC LEUKAEMIA REFRACTORY
     Route: 065
  3. OBINUTUZUMAB. [Suspect]
     Active Substance: OBINUTUZUMAB
     Indication: CHRONIC LYMPHOCYTIC LEUKAEMIA REFRACTORY
     Dosage: 8 DOSES OF 1000 MG OVER 21 WEEKS
     Route: 065

REACTIONS (16)
  - Anaemia [Unknown]
  - Platelet count decreased [Unknown]
  - Tracheobronchitis [Unknown]
  - Urinary tract infection [Unknown]
  - Infusion related reaction [Unknown]
  - Hydrocele [Unknown]
  - Leukopenia [Unknown]
  - Hyponatraemia [Unknown]
  - Pneumonia [Unknown]
  - Headache [Unknown]
  - Syncope [Unknown]
  - Lipase increased [Unknown]
  - Chills [Unknown]
  - Neutropenia [Unknown]
  - Neutrophil count decreased [Unknown]
  - Thrombocytopenia [Unknown]
